FAERS Safety Report 19305729 (Version 1)
Quarter: 2021Q2

REPORT INFORMATION
  Report Type: Spontaneous
  Country: US (occurrence: US)
  Receive Date: 20210525
  Receipt Date: 20210525
  Transmission Date: 20210717
  Serious: No
  Sender: FDA-Public Use
  Company Number: US-ASCEND THERAPEUTICS US, LLC-2111958

PATIENT
  Age: 57 Year
  Sex: Female
  Weight: 68.95 kg

DRUGS (9)
  1. ESTROGEL [Suspect]
     Active Substance: ESTRADIOL
  2. ESTROGEL [Suspect]
     Active Substance: ESTRADIOL
     Indication: PRODUCT USED FOR UNKNOWN INDICATION
     Route: 065
  3. ATENOLOL. [Concomitant]
     Active Substance: ATENOLOL
     Route: 065
  4. SINGULAIR [Suspect]
     Active Substance: MONTELUKAST SODIUM
     Route: 065
  5. ESTRADIOL, NOS (ESTRADIOL) (UNKNOWN), UNKNOWN [Suspect]
     Active Substance: ESTRADIOL
     Route: 065
  6. ESTROGEL [Suspect]
     Active Substance: ESTRADIOL
     Route: 065
  7. PFIZER?BIONTECH COVID?19 VACCINE [Suspect]
     Active Substance: TOZINAMERAN
     Route: 065
     Dates: start: 20210405, end: 20210405
  8. ROSUVASTATIN CALCIUM. [Concomitant]
     Active Substance: ROSUVASTATIN CALCIUM
     Route: 065
  9. COVID?19 VACCINE NOS. [Suspect]
     Active Substance: COVID-19 VACCINE NOS
     Route: 065
     Dates: start: 20210315, end: 20210315

REACTIONS (11)
  - Breast swelling [Unknown]
  - Product dose omission issue [None]
  - Pain [Recovered/Resolved]
  - Insomnia [Recovered/Resolved]
  - Pyrexia [Recovered/Resolved]
  - Alopecia [Unknown]
  - Breast pain [Recovered/Resolved]
  - Lymphadenopathy [Unknown]
  - Headache [Recovered/Resolved]
  - Lower respiratory tract congestion [Unknown]
  - Back pain [Recovered/Resolved]

NARRATIVE: CASE EVENT DATE: 20210405
